FAERS Safety Report 12472568 (Version 1)
Quarter: 2016Q2

REPORT INFORMATION
  Report Type: Spontaneous
  Country: US (occurrence: US)
  Receive Date: 20160616
  Receipt Date: 20160616
  Transmission Date: 20160815
  Serious: No
  Sender: FDA-Public Use
  Company Number: US-BRISTOL-MYERS SQUIBB COMPANY-BMS-2016-044584

PATIENT
  Age: 80 Year
  Sex: Male
  Weight: 79.37 kg

DRUGS (1)
  1. OPDIVO [Suspect]
     Active Substance: NIVOLUMAB
     Indication: LUNG SQUAMOUS CELL CARCINOMA METASTATIC
     Dosage: UNK, Q2WK
     Route: 042

REACTIONS (3)
  - Depression [Unknown]
  - Constipation [Unknown]
  - Thyroid disorder [Unknown]
